FAERS Safety Report 9212764 (Version 1)
Quarter: 2013Q1

REPORT INFORMATION
  Report Type: Spontaneous
  Country: US (occurrence: None)
  Receive Date: 20120820
  Receipt Date: 20120820
  Transmission Date: 20140127
  Serious: No
  Sender: FDA-Public Use
  Company Number: 1000037075

PATIENT
  Age: 59 Year
  Sex: Female
  Weight: 64 kg

DRUGS (13)
  1. VIIBRYD (VILAZODONE) (10 MILLIGRAM TABLETS) [Suspect]
     Indication: DEPRESSION
     Route: 048
     Dates: start: 20120420, end: 20120426
  2. VIIBRYD (VILAZODONE) (10 MILLIGRAM TABLETS) [Suspect]
     Indication: ANXIETY
     Route: 048
     Dates: start: 20120420, end: 20120426
  3. VIIBRYD (VILAZODONE) (20 MILLIGRAM TABLETS) [Suspect]
     Indication: DEPRESSION
     Route: 048
     Dates: start: 20120427, end: 201205
  4. VIIBRYD (VILAZODONE) (20 MILLIGRAM TABLETS) [Suspect]
     Indication: ANXIETY
     Route: 048
     Dates: start: 20120427, end: 201205
  5. WELLBUTRIN (BUPROPION HYDROCHLORIDE) (BUPROPION HYDROCHLORIDE) [Concomitant]
  6. XALATAN (LANTANOPROST) (LATANOPROST) [Concomitant]
  7. VITAMIN D3 9COLECALCIFEROL) (COLECALCIFEROL) [Concomitant]
  8. CALCIUM (CALCIUM) (CALCIUM) [Concomitant]
  9. NASONEX (MOMETASONE FUROATE) (MOMETASONE FUROATE) [Concomitant]
  10. SYNTHROID (LEVOTHYROXINE SODIUM) (LEVOTHYROXINE SODIUM) [Concomitant]
  11. MAXAIR (PIRBUTEROL ACETATE) (PIRBUTEROL ACETATE) [Concomitant]
  12. NEURONTIN (GABAPENTIN) (GABAPENTIN) [Concomitant]
  13. ADVAIR (SERETIDE) (SERETIDE) [Concomitant]

REACTIONS (5)
  - Urticaria [None]
  - Feeling hot [None]
  - Hyperhidrosis [None]
  - Photosensitivity reaction [None]
  - Skin exfoliation [None]
